FAERS Safety Report 14445036 (Version 1)
Quarter: 2018Q1

REPORT INFORMATION
  Report Type: Spontaneous
  Country: US (occurrence: US)
  Receive Date: 20180126
  Receipt Date: 20180126
  Transmission Date: 20180509
  Serious: No
  Sender: FDA-Public Use
  Company Number: US-PFIZER INC-2018033371

PATIENT
  Age: 45 Year
  Sex: Female

DRUGS (7)
  1. CODEINE [Suspect]
     Active Substance: CODEINE
     Dosage: UNK
  2. OXYCODONE [Suspect]
     Active Substance: OXYCODONE
     Dosage: UNK
  3. MORPHINE SULFATE. [Suspect]
     Active Substance: MORPHINE SULFATE
     Dosage: UNK
  4. SEVELAMER CARBONATE. [Suspect]
     Active Substance: SEVELAMER CARBONATE
     Dosage: UNK
  5. TRAMADOL. [Suspect]
     Active Substance: TRAMADOL
     Dosage: UNK
  6. RENVELA [Suspect]
     Active Substance: SEVELAMER CARBONATE
     Dosage: UNK
  7. CALCITONIN [Suspect]
     Active Substance: CALCITONIN
     Dosage: UNK

REACTIONS (1)
  - Drug hypersensitivity [Unknown]
